FAERS Safety Report 7585446-5 (Version None)
Quarter: 2011Q2

REPORT INFORMATION
  Report Type: 
  Country: None (occurrence: None)
  Receive Date: 20110624
  Receipt Date: 20110620
  Transmission Date: 20111010
  Serious: Yes (Death, Life-Threatening, Hospitalization, Other)
  Sender: FDA-Public Use
  Company Number: 201110735

PATIENT
  Sex: Male

DRUGS (1)
  1. LIORESAL [Suspect]
     Indication: MUSCLE SPASTICITY
     Dosage: MCG,DAILY, INTRATHECAL
     Route: 037

REACTIONS (3)
  - POST PROCEDURAL INFECTION [None]
  - WITHDRAWAL SYNDROME [None]
  - CARDIAC ARREST [None]
